FAERS Safety Report 16993006 (Version 1)
Quarter: 2019Q4

REPORT INFORMATION
  Report Type: Spontaneous
  Country: FR (occurrence: FR)
  Receive Date: 20191105
  Receipt Date: 20191105
  Transmission Date: 20200122
  Serious: Yes (Life-Threatening)
  Sender: FDA-Public Use
  Company Number: FR-PFIZER INC-2019470875

PATIENT
  Age: 19 Year
  Sex: Female
  Weight: 55 kg

DRUGS (6)
  1. PARACETAMOL [Suspect]
     Active Substance: ACETAMINOPHEN
     Dosage: 12 G, UNK
     Route: 048
     Dates: start: 20191008, end: 20191008
  2. ALPRAZOLAM. [Suspect]
     Active Substance: ALPRAZOLAM
     Dosage: 12.5 MG, UNK
     Route: 048
     Dates: start: 20191008, end: 20191008
  3. DAFALGAN CODEINE [Suspect]
     Active Substance: ACETAMINOPHEN\CODEINE PHOSPHATE
     Dosage: 16 DF, UNK
     Route: 048
     Dates: start: 20191008, end: 20191008
  4. TRAMADOL BASE [Suspect]
     Active Substance: TRAMADOL
     Dosage: 3 G, UNK
     Route: 048
     Dates: start: 20191008, end: 20191008
  5. DOMPERIDONE [Suspect]
     Active Substance: DOMPERIDONE
     Dosage: 200 MG, UNK
     Route: 048
     Dates: start: 20191008, end: 20191008
  6. ZOLPIDEM [Suspect]
     Active Substance: ZOLPIDEM TARTRATE
     Dosage: 140 MG, UNK
     Route: 048
     Dates: start: 20191008, end: 20191008

REACTIONS (8)
  - Hepatocellular injury [Recovered/Resolved]
  - Sinus tachycardia [Recovered/Resolved]
  - Pneumonia aspiration [Recovered/Resolved]
  - Bradypnoea [Recovered/Resolved]
  - Acute hepatic failure [Recovered/Resolved]
  - Hypotension [Recovered/Resolved]
  - Toxicity to various agents [Recovered/Resolved]
  - Coma [Recovered/Resolved]

NARRATIVE: CASE EVENT DATE: 201910
